FAERS Safety Report 7731067-0 (Version None)
Quarter: 2011Q3

REPORT INFORMATION
  Report Type: 
  Country: None (occurrence: None)
  Receive Date: 20110906
  Receipt Date: 20110906
  Transmission Date: 20111222
  Serious: Yes (Hospitalization, Other)
  Sender: FDA-Public Use
  Company Number: None

PATIENT
  Age: 27 Year
  Sex: Female
  Weight: 68.038 kg

DRUGS (1)
  1. SAPHRIS [Suspect]
     Indication: SCHIZOAFFECTIVE DISORDER
     Dosage: 10MG
     Route: 060

REACTIONS (6)
  - HEART RATE INCREASED [None]
  - DRUG HYPERSENSITIVITY [None]
  - BLOOD PRESSURE DECREASED [None]
  - PHARYNGEAL OEDEMA [None]
  - INFLUENZA LIKE ILLNESS [None]
  - SWOLLEN TONGUE [None]
